FAERS Safety Report 11219244 (Version 1)
Quarter: 2015Q2

REPORT INFORMATION
  Report Type: Spontaneous
  Country: US (occurrence: US)
  Receive Date: 20150625
  Receipt Date: 20150625
  Transmission Date: 20150821
  Serious: No
  Sender: FDA-Public Use
  Company Number: US-ASTRAZENECA-2015SE60032

PATIENT
  Sex: Female

DRUGS (5)
  1. ESTAZOLAM. [Concomitant]
     Active Substance: ESTAZOLAM
  2. VITAMIN WHICH INCLUDES CALCIUM AND VITAMIN D [Concomitant]
  3. CRESTOR [Suspect]
     Active Substance: ROSUVASTATIN CALCIUM
     Route: 048
  4. 50K OF VITAMIN D [Concomitant]
  5. METOPROLOL TARTRATE. [Concomitant]
     Active Substance: METOPROLOL TARTRATE

REACTIONS (5)
  - Scoliosis [Unknown]
  - Arthralgia [Unknown]
  - Exostosis [Unknown]
  - Bone pain [Unknown]
  - Pain [Unknown]
